FAERS Safety Report 19432830 (Version 1)
Quarter: 2021Q2

REPORT INFORMATION
  Report Type: Spontaneous
  Country: GB (occurrence: GB)
  Receive Date: 20210618
  Receipt Date: 20210618
  Transmission Date: 20210717
  Serious: Yes (Other)
  Sender: FDA-Public Use
  Company Number: GB-TEVA-2021-GB-1923234

PATIENT
  Age: 51 Year
  Sex: Female
  Weight: 69 kg

DRUGS (2)
  1. CLARITHROMYCIN. [Suspect]
     Active Substance: CLARITHROMYCIN
     Indication: PHARYNGITIS
     Route: 048
     Dates: start: 20210520, end: 20210521
  2. CETIRIZINE HYDROCHLORIDE. [Concomitant]
     Active Substance: CETIRIZINE HYDROCHLORIDE

REACTIONS (3)
  - Dizziness [Unknown]
  - Product use complaint [Unknown]
  - Swollen tongue [Recovered/Resolved]

NARRATIVE: CASE EVENT DATE: 20210520
